FAERS Safety Report 9989053 (Version 1)
Quarter: 2014Q1

REPORT INFORMATION
  Report Type: Spontaneous
  Country: PT (occurrence: PT)
  Receive Date: 20140310
  Receipt Date: 20140310
  Transmission Date: 20141002
  Serious: Yes (Other)
  Sender: FDA-Public Use
  Company Number: PT-ROCHE-1355945

PATIENT
  Age: 65 Year
  Sex: Male

DRUGS (11)
  1. BEVACIZUMAB [Suspect]
     Indication: COLON CANCER METASTATIC
     Route: 065
     Dates: start: 201108, end: 201307
  2. BEVACIZUMAB [Suspect]
     Route: 065
     Dates: start: 201309
  3. CAPECITABINE [Suspect]
     Indication: COLON CANCER METASTATIC
     Route: 065
     Dates: start: 201207, end: 201307
  4. CAPECITABINE [Suspect]
     Route: 065
     Dates: start: 201309
  5. OXALIPLATIN [Suspect]
     Indication: COLON CANCER METASTATIC
     Route: 065
     Dates: start: 201207, end: 20130506
  6. OXALIPLATIN [Suspect]
     Route: 065
     Dates: start: 20100510, end: 201012
  7. IRINOTECAN [Suspect]
     Indication: COLON CANCER METASTATIC
     Route: 065
     Dates: start: 201108
  8. FOLINIC ACID [Suspect]
     Indication: COLON CANCER METASTATIC
     Route: 065
     Dates: start: 201108
  9. FOLINIC ACID [Suspect]
     Route: 065
     Dates: start: 20100510, end: 201012
  10. FLUOROURACIL [Suspect]
     Indication: COLON CANCER METASTATIC
     Route: 065
     Dates: start: 201108
  11. FLUOROURACIL [Suspect]
     Route: 065
     Dates: start: 20100510, end: 201012

REACTIONS (9)
  - Alopecia [Unknown]
  - Rectal haemorrhage [Unknown]
  - Diverticulum intestinal [Unknown]
  - Metastases to lung [Unknown]
  - Metastases to liver [Unknown]
  - Neuropathy peripheral [Unknown]
  - Disease progression [Unknown]
  - Lung neoplasm [Unknown]
  - Hepatic lesion [Unknown]
